FAERS Safety Report 9167053 (Version 1)
Quarter: 2013Q1

REPORT INFORMATION
  Report Type: Spontaneous
  Country: US (occurrence: US)
  Receive Date: 20130318
  Receipt Date: 20130318
  Transmission Date: 20140127
  Serious: No
  Sender: FDA-Public Use
  Company Number: US-009507513-1303USA006464

PATIENT
  Sex: Male

DRUGS (5)
  1. REBETOL [Suspect]
     Indication: CHRONIC HEPATITIS C
     Dosage: 800 MG, DAILY IN DIVIDED DOSES
     Route: 048
     Dates: start: 20121013
  2. REBETOL [Suspect]
     Dosage: 600MG DAILY IN DIVIDED DOSES
     Route: 048
  3. REBETOL [Suspect]
     Dosage: 800 MG, DAILY IN DIVIDED DOSES
     Route: 048
  4. VICTRELIS [Suspect]
     Indication: CHRONIC HEPATITIS C
     Dosage: UNK
     Dates: start: 20121029
  5. PEGASYS [Suspect]
     Indication: CHRONIC HEPATITIS C
     Dosage: 180 MICROGRAM, INJECTING SATURDAY EVENINGS
     Route: 058
     Dates: start: 20121013

REACTIONS (9)
  - Dysgeusia [Unknown]
  - Thirst [Unknown]
  - Glossodynia [Recovered/Resolved]
  - Dyspnoea [Unknown]
  - Anaemia [Unknown]
  - Dry skin [Unknown]
  - Pruritus [Unknown]
  - Nausea [Unknown]
  - Flatulence [Unknown]
